FAERS Safety Report 7831477-7 (Version None)
Quarter: 2011Q4

REPORT INFORMATION
  Report Type: 
  Country: None (occurrence: None)
  Receive Date: 20111021
  Receipt Date: 20111021
  Transmission Date: 20120403
  Serious: Yes (Other)
  Sender: FDA-Public Use
  Company Number: None

PATIENT
  Age: 67 Year
  Sex: Male
  Weight: 91.625 kg

DRUGS (2)
  1. SEROQUEL [Suspect]
     Indication: MANIA
     Dosage: 1 TABLET
     Route: 048
     Dates: start: 20110929, end: 20111006
  2. SEROQUEL [Suspect]
     Indication: EUPHORIC MOOD
     Dosage: 1 TABLET
     Route: 048
     Dates: start: 20110929, end: 20111006

REACTIONS (6)
  - TINNITUS [None]
  - JOINT SWELLING [None]
  - GAIT DISTURBANCE [None]
  - HYPERSENSITIVITY [None]
  - DYSGEUSIA [None]
  - BALANCE DISORDER [None]
